FAERS Safety Report 19129998 (Version 2)
Quarter: 2021Q2

REPORT INFORMATION
  Report Type: Spontaneous
  Country: JP (occurrence: JP)
  Receive Date: 20210413
  Receipt Date: 20210618
  Transmission Date: 20210717
  Serious: Yes (Death, Other)
  Sender: FDA-Public Use
  Company Number: JP-009507513-2103JPN002466J

PATIENT
  Age: 7 Decade
  Sex: Male

DRUGS (3)
  1. KEYTRUDA [Suspect]
     Active Substance: PEMBROLIZUMAB
     Indication: HEAD AND NECK CANCER STAGE III
     Dosage: 200 MILLIGRAM, Q3W
     Route: 041
     Dates: start: 202103, end: 202103
  2. 5?FU [FLUOROURACIL] [Concomitant]
     Active Substance: FLUOROURACIL
     Indication: HEAD AND NECK CANCER STAGE III
     Dosage: 1000 MILLIGRAM/SQ. METER, QD
     Route: 041
     Dates: start: 202103, end: 2021
  3. CISPLATIN. [Concomitant]
     Active Substance: CISPLATIN
     Indication: HEAD AND NECK CANCER STAGE III
     Dosage: 100 MILLIGRAM, Q3W
     Route: 041
     Dates: start: 202103, end: 2021

REACTIONS (2)
  - Sudden death [Fatal]
  - Hyponatraemia [Unknown]

NARRATIVE: CASE EVENT DATE: 202103
